FAERS Safety Report 17423196 (Version 1)
Quarter: 2020Q1

REPORT INFORMATION
  Report Type: Spontaneous
  Country: US (occurrence: US)
  Receive Date: 20200131
  Receipt Date: 20200131
  Transmission Date: 20200409
  Serious: No
  Sender: FDA-Public Use
  Company Number: None

PATIENT
  Age: 58 Year
  Sex: Male

DRUGS (1)
  1. CELLCEPT [Suspect]
     Active Substance: MYCOPHENOLATE MOFETIL\MYCOPHENOLATE MOFETIL HYDROCHLORIDE
     Dosage: ?          OTHER DOSE:2 CAPS;?
     Route: 048
     Dates: start: 2016

REACTIONS (2)
  - Therapy cessation [None]
  - Neoplasm malignant [None]

NARRATIVE: CASE EVENT DATE: 20200131
